FAERS Safety Report 8607013-4 (Version None)
Quarter: 2012Q3

REPORT INFORMATION
  Report Type: 
  Country: None (occurrence: None)
  Receive Date: 20120820
  Receipt Date: 20120814
  Transmission Date: 20120928
  Serious: Yes (Other)
  Sender: FDA-Public Use
  Company Number: CN-ROCHE-1103004

PATIENT
  Age: 31 Year
  Sex: Male

DRUGS (14)
  1. MYCOPHENOLATE MOFETIL [Suspect]
     Indication: PROPHYLAXIS
  2. CYTARABINE [Concomitant]
     Indication: CHEMOTHERAPY
     Dates: start: 20081227
  3. PREDNISONE [Concomitant]
     Indication: CHEMOTHERAPY
     Dates: start: 20081227
  4. GARLICIN [Concomitant]
     Indication: PROPHYLAXIS
  5. VORICONAZOLE [Suspect]
     Indication: PRODUCT USED FOR UNKNOWN INDICATION
  6. CYCLOPHOSPHAMIDE [Concomitant]
     Indication: CHEMOTHERAPY
     Dates: start: 20081227
  7. METHOTREXATE SODIUM [Concomitant]
     Indication: PROPHYLAXIS
  8. FLUCONAZOLE [Concomitant]
     Indication: PROPHYLAXIS
  9. ACYCLOVIR [Concomitant]
     Indication: PROPHYLAXIS
  10. CYCLOSPORINE [Suspect]
     Indication: PROPHYLAXIS
  11. GANCICLOVIR [Concomitant]
     Indication: PROPHYLAXIS
  12. VINCRISTINE [Concomitant]
     Indication: CHEMOTHERAPY
     Dates: start: 20081227
  13. PROGRAF [Suspect]
     Indication: PRODUCT USED FOR UNKNOWN INDICATION
  14. IMATINIB MESYLATE [Concomitant]
     Indication: CHEMOTHERAPY
     Dates: start: 20081227

REACTIONS (4)
  - PERITONITIS [None]
  - POSTERIOR REVERSIBLE ENCEPHALOPATHY SYNDROME [None]
  - PNEUMONIA [None]
  - CYSTITIS [None]
